FAERS Safety Report 14030418 (Version 1)
Quarter: 2017Q4

REPORT INFORMATION
  Report Type: Spontaneous
  Country: US (occurrence: US)
  Receive Date: 20171002
  Receipt Date: 20171002
  Transmission Date: 20180321
  Serious: Yes (Hospitalization, Other)
  Sender: FDA-Public Use
  Company Number: US-BEH-2017083891

PATIENT
  Sex: Female
  Weight: 83.45 kg

DRUGS (33)
  1. CHOLECALCIFEROL [Concomitant]
     Active Substance: CHOLECALCIFEROL
  2. SINEMET [Concomitant]
     Active Substance: CARBIDOPA\LEVODOPA
  3. CALCIUM CARBONATE. [Concomitant]
     Active Substance: CALCIUM CARBONATE
  4. HIZENTRA [Suspect]
     Active Substance: HUMAN IMMUNOGLOBULIN G
     Dosage: UNK
     Route: 058
  5. DULOXETINE. [Concomitant]
     Active Substance: DULOXETINE
  6. LASIX [Concomitant]
     Active Substance: FUROSEMIDE
  7. VITAMIN D                          /00107901/ [Concomitant]
     Active Substance: ERGOCALCIFEROL
  8. POTASSIUM CHLORIDE. [Concomitant]
     Active Substance: POTASSIUM CHLORIDE
  9. PROMETHAZINE [Concomitant]
     Active Substance: PROMETHAZINE\PROMETHAZINE HYDROCHLORIDE
  10. LORTAB [Concomitant]
     Active Substance: ACETAMINOPHEN\HYDROCODONE BITARTRATE
  11. HYDROCODONE W/APAP                 /00607101/ [Concomitant]
  12. HIZENTRA [Suspect]
     Active Substance: HUMAN IMMUNOGLOBULIN G
     Indication: IMMUNODEFICIENCY COMMON VARIABLE
     Dosage: 10 G, QW
     Route: 058
     Dates: start: 20151214
  13. CARDIZEM [Concomitant]
     Active Substance: DILTIAZEM HYDROCHLORIDE
  14. MELATONIN [Concomitant]
     Active Substance: MELATONIN
  15. REGLAN [Concomitant]
     Active Substance: METOCLOPRAMIDE HYDROCHLORIDE
  16. OMEPRAZOLE. [Concomitant]
     Active Substance: OMEPRAZOLE
  17. CALCIUM+D3 [Concomitant]
  18. JANUVIA [Concomitant]
     Active Substance: SITAGLIPTIN PHOSPHATE
  19. CLONIDINE. [Concomitant]
     Active Substance: CLONIDINE
  20. METOPROLOL. [Concomitant]
     Active Substance: METOPROLOL
  21. ULTRAM [Concomitant]
     Active Substance: TRAMADOL HYDROCHLORIDE
  22. FISH OIL OMEGA 3 [Concomitant]
     Active Substance: FISH OIL
  23. DILTIAZEM. [Concomitant]
     Active Substance: DILTIAZEM
  24. FOLTX [Concomitant]
     Active Substance: CYANOCOBALAMIN CO-57\FOLIC ACID\PYRIDOXINE HYDROCHLORIDE
  25. CYCLOBENZAPRINE. [Concomitant]
     Active Substance: CYCLOBENZAPRINE
  26. FISH OIL [Concomitant]
     Active Substance: FISH OIL
  27. LYRICA [Concomitant]
     Active Substance: PREGABALIN
  28. DICYCLOMINE                        /00068601/ [Concomitant]
     Active Substance: DICYCLOMINE HYDROCHLORIDE
  29. XANAX [Concomitant]
     Active Substance: ALPRAZOLAM
  30. COUMADIN [Concomitant]
     Active Substance: WARFARIN SODIUM
  31. ZYRTEC [Concomitant]
     Active Substance: CETIRIZINE HYDROCHLORIDE
  32. FOLIC ACID. [Concomitant]
     Active Substance: FOLIC ACID
  33. PRENATAL                           /00231801/ [Concomitant]
     Active Substance: VITAMINS

REACTIONS (1)
  - Intestinal obstruction [Unknown]
